FAERS Safety Report 8364501-6 (Version None)
Quarter: 2012Q2

REPORT INFORMATION
  Report Type: 
  Country: None (occurrence: None)
  Receive Date: 20120516
  Receipt Date: 20120507
  Transmission Date: 20120825
  Serious: Yes (Hospitalization)
  Sender: FDA-Public Use
  Company Number: US-ASTRAZENECA-2012SE29412

PATIENT
  Age: 53 Year
  Sex: Male
  Weight: 76.7 kg

DRUGS (14)
  1. OMEPRAZOLE [Concomitant]
     Dates: start: 20110426
  2. CLONIDINE HYDROCHLORIDE [Concomitant]
     Dates: start: 20091230
  3. CYCLOSPORINE [Suspect]
     Indication: KIDNEY TRANSPLANT REJECTION
     Route: 048
     Dates: start: 20080724
  4. AMLODIPINE BESILATE [Concomitant]
     Dates: start: 20091229
  5. PREDNISONE TAB [Concomitant]
     Dates: start: 20080918
  6. CELLCEPT [Concomitant]
     Dates: start: 20080724
  7. PRAVASTATIN SODIUM [Concomitant]
     Dates: start: 20100719
  8. ASPIRIN [Concomitant]
     Dates: start: 20030518
  9. TOPROL-XL [Suspect]
     Indication: HYPERTENSION
     Route: 048
  10. LOSARTAN POTASSIUM [Concomitant]
     Dates: start: 20120125
  11. HYDROCHLOROTHIAZIDE [Concomitant]
     Dates: start: 20100719
  12. FERROUS SULFATE TAB [Concomitant]
     Dates: start: 20081031
  13. CYCLOSPORINE [Suspect]
     Indication: IMMUNOSUPPRESSION
     Route: 048
     Dates: start: 20080724
  14. TEGRETOL [Concomitant]
     Dates: start: 20081022

REACTIONS (3)
  - SYNCOPE [None]
  - DEHYDRATION [None]
  - HYPOTENSION [None]
